FAERS Safety Report 11753440 (Version 1)
Quarter: 2015Q4

REPORT INFORMATION
  Report Type: Spontaneous
  Country: FR (occurrence: FR)
  Receive Date: 20151119
  Receipt Date: 20151119
  Transmission Date: 20160304
  Serious: Yes (Hospitalization)
  Sender: FDA-Public Use
  Company Number: FR-ROCHE-1663055

PATIENT
  Age: 63 Year
  Sex: Female

DRUGS (9)
  1. IMUREL [Interacting]
     Active Substance: AZATHIOPRINE SODIUM
     Indication: CROHN^S DISEASE
     Route: 048
     Dates: start: 20150120
  2. TAZOCILLINE [Concomitant]
     Active Substance: PIPERACILLIN SODIUM\TAZOBACTAM SODIUM
  3. KARDEGIC [Concomitant]
     Active Substance: ASPIRIN LYSINE
     Dosage: 1 SACHET/DAY
     Route: 065
  4. ROVALCYTE [Suspect]
     Active Substance: VALGANCICLOVIR HYDROCHLORIDE
     Indication: CYTOMEGALOVIRUS INFECTION
     Route: 048
     Dates: start: 20150407, end: 20150522
  5. IMUREL [Interacting]
     Active Substance: AZATHIOPRINE SODIUM
     Dosage: DOSE REDUCED TO 100 MG/DAY
     Route: 048
     Dates: end: 20150506
  6. ADVAGRAF [Concomitant]
     Active Substance: TACROLIMUS
     Route: 065
  7. CIFLOX (FRANCE) [Concomitant]
     Active Substance: CIPROFLOXACIN
  8. CEFTRIAXONE. [Concomitant]
     Active Substance: CEFTRIAXONE
     Route: 065
  9. CALCIPRAT D3 [Concomitant]

REACTIONS (4)
  - Leukopenia [Recovered/Resolved]
  - Neutropenia [Recovered/Resolved]
  - Thrombocytopenia [Recovered/Resolved]
  - Drug interaction [Unknown]

NARRATIVE: CASE EVENT DATE: 20150420
